FAERS Safety Report 16661524 (Version 1)
Quarter: 2019Q3

REPORT INFORMATION
  Report Type: Spontaneous
  Country: US (occurrence: US)
  Receive Date: 20190802
  Receipt Date: 20190802
  Transmission Date: 20191004
  Serious: No
  Sender: FDA-Public Use
  Company Number: US-ENDO PHARMACEUTICALS INC-2018-041143

PATIENT
  Sex: Male
  Weight: 79.37 kg

DRUGS (1)
  1. TESTOPEL [Suspect]
     Active Substance: TESTOSTERONE
     Indication: BLOOD TESTOSTERONE DECREASED
     Dosage: 1050 MG, 14 PELLETS, INSERTED ON AN AVERAGE EVERY 4 MONTHS, BETWEEN 3 TO 5 MONTHS
     Route: 058
     Dates: start: 2013

REACTIONS (3)
  - Weight decreased [Unknown]
  - Implant site bruising [Unknown]
  - Implant site pain [Unknown]
